FAERS Safety Report 5404588-3 (Version None)
Quarter: 2007Q3

REPORT INFORMATION
  Report Type: 
  Country: None (occurrence: None)
  Receive Date: 20070713
  Receipt Date: 20070413
  Transmission Date: 20080115
  Serious: Yes (Other)
  Sender: FDA-Public Use
  Company Number: US-JNJFOC-20070403421

PATIENT
  Age: 48 Year
  Sex: Female
  Weight: 68.9467 kg

DRUGS (1)
  1. ORTHO EVRA [Suspect]
     Indication: HAEMORRHAGE
     Dosage: TRANSDERMAL
     Route: 062
     Dates: start: 20030401, end: 20030701

REACTIONS (1)
  - SUPERIOR SAGITTAL SINUS THROMBOSIS [None]
